FAERS Safety Report 10403002 (Version 1)
Quarter: 2014Q3

REPORT INFORMATION
  Report Type: Spontaneous
  Country: US (occurrence: None)
  Receive Date: 20140821
  Receipt Date: 20140821
  Transmission Date: 20150326
  Serious: Yes (Life-Threatening)
  Sender: FDA-Public Use
  Company Number: None

PATIENT
  Age: 81 Year
  Sex: Female
  Weight: 77.11 kg

DRUGS (24)
  1. AMOXICILLIN-CLAVULANATE [Concomitant]
     Active Substance: AMOXICILLIN\CLAVULANIC ACID
  2. PANTOPRAZOLE [Concomitant]
     Active Substance: PANTOPRAZOLE SODIUM
  3. ACETAMINOPHEN. [Concomitant]
     Active Substance: ACETAMINOPHEN
  4. POTASSIUM CHLORIDE. [Concomitant]
     Active Substance: POTASSIUM CHLORIDE
  5. ALPRAZOLAM. [Concomitant]
     Active Substance: ALPRAZOLAM
  6. BRINZOLAMIDE 1% [Concomitant]
     Active Substance: BRINZOLAMIDE
  7. AMIODARONE [Concomitant]
     Active Substance: AMIODARONE
  8. LATANOPROST 0.005 % OPHTHALMIC SOLUTION [Concomitant]
     Active Substance: LATANOPROST
  9. LEVOTHYROXINE [Concomitant]
     Active Substance: LEVOTHYROXINE
  10. FUROSEMIDE. [Concomitant]
     Active Substance: FUROSEMIDE
  11. MAGNESIUM HYDROXIDE. [Concomitant]
     Active Substance: MAGNESIUM HYDROXIDE
  12. COMBIGAN [Concomitant]
     Active Substance: BRIMONIDINE TARTRATE\TIMOLOL MALEATE
  13. APIXABAN 5 MG BRISTOL-MYERS SQUIBB [Suspect]
     Active Substance: APIXABAN
     Indication: ATRIAL FIBRILLATION
     Dosage: 5 MG/2 PILLS  BID ORAL
     Route: 048
     Dates: start: 20140809, end: 20140820
  14. DULOXETINE [Concomitant]
     Active Substance: DULOXETINE
  15. MAGNESIUM OXIDE. [Concomitant]
     Active Substance: MAGNESIUM OXIDE
  16. NEBIVOLOL [Concomitant]
     Active Substance: NEBIVOLOL
  17. FLUTICASONE [Concomitant]
     Active Substance: FLUTICASONE\FLUTICASONE PROPIONATE
  18. VALSARTAN. [Concomitant]
     Active Substance: VALSARTAN
  19. ATORVASTATIN [Concomitant]
     Active Substance: ATORVASTATIN
  20. ROZEREM [Concomitant]
     Active Substance: RAMELTEON
  21. BISACODYL. [Concomitant]
     Active Substance: BISACODYL
  22. HYDROCHLORTHIAZIDE [Concomitant]
     Active Substance: HYDROCHLOROTHIAZIDE
  23. LACTOBACILLUS ACIDOPHILUS [Concomitant]
     Active Substance: LACTOBACILLUS ACIDOPHILUS
  24. MELOXICAM. [Concomitant]
     Active Substance: MELOXICAM

REACTIONS (3)
  - VIIth nerve paralysis [None]
  - Cerebrovascular accident [None]
  - Asthenia [None]

NARRATIVE: CASE EVENT DATE: 20140820
